FAERS Safety Report 18308872 (Version 2)
Quarter: 2021Q1

REPORT INFORMATION
  Report Type: Spontaneous
  Country: US (occurrence: US)
  Receive Date: 20200924
  Receipt Date: 20210111
  Transmission Date: 20210419
  Serious: No
  Sender: FDA-Public Use
  Company Number: US-PFIZER INC-2020367380

PATIENT
  Age: 71 Year
  Sex: Female

DRUGS (1)
  1. XELJANZ XR [Suspect]
     Active Substance: TOFACITINIB CITRATE
     Indication: RHEUMATOID ARTHRITIS
     Dosage: 11 MG

REACTIONS (9)
  - Skin discolouration [Unknown]
  - Stress [Unknown]
  - Hepatomegaly [Unknown]
  - Lacrimal structural disorder [Unknown]
  - Hair colour changes [Unknown]
  - Hepatic enzyme increased [Unknown]
  - Blood disorder [Unknown]
  - Nail growth abnormal [Unknown]
  - Condition aggravated [Unknown]
